FAERS Safety Report 20404348 (Version 1)
Quarter: 2022Q1

REPORT INFORMATION
  Report Type: Spontaneous
  Country: US (occurrence: US)
  Receive Date: 20220131
  Receipt Date: 20220131
  Transmission Date: 20220423
  Serious: No
  Sender: FDA-Public Use
  Company Number: US-ELI_LILLY_AND_COMPANY-US202201010925

PATIENT
  Age: 32 Year
  Sex: Female

DRUGS (1)
  1. LYUMJEV KWIKPEN [Suspect]
     Active Substance: INSULIN LISPRO
     Indication: Type 1 diabetes mellitus
     Dosage: 140 U, DAILY
     Route: 058
     Dates: start: 202110

REACTIONS (1)
  - Blood glucose increased [Recovered/Resolved]

NARRATIVE: CASE EVENT DATE: 20220124
